FAERS Safety Report 12239590 (Version 1)
Quarter: 2016Q2

REPORT INFORMATION
  Report Type: Spontaneous
  Country: DE (occurrence: DE)
  Receive Date: 20160405
  Receipt Date: 20160405
  Transmission Date: 20160815
  Serious: Yes (Congenital Anomaly)
  Sender: FDA-Public Use
  Company Number: DE-GLAXOSMITHKLINE-DE2016GSK044525

PATIENT
  Age: 1 Day
  Sex: Male
  Weight: 1.18 kg

DRUGS (7)
  1. QUENSYL [Suspect]
     Active Substance: HYDROXYCHLOROQUINE
     Indication: SYSTEMIC LUPUS ERYTHEMATOSUS
     Dosage: 200 MG, QD
     Route: 064
     Dates: start: 20150210, end: 20150911
  2. METOPROLOL. [Suspect]
     Active Substance: METOPROLOL
     Indication: HYPERTENSION
     Dosage: 50 MG, BID
     Route: 064
     Dates: start: 20150210, end: 20150911
  3. LAMOTRIGINE. [Suspect]
     Active Substance: LAMOTRIGINE
     Indication: COMPLEX PARTIAL SEIZURES
     Dosage: 175 MG, BID
     Route: 064
     Dates: start: 20150210, end: 20150911
  4. MARCUMAR [Concomitant]
     Active Substance: PHENPROCOUMON
     Indication: THROMBOSIS PROPHYLAXIS
     Dosage: UNK
     Route: 064
     Dates: start: 20150210, end: 20150308
  5. ASS 100 [Concomitant]
     Active Substance: ASPIRIN
     Indication: THROMBOSIS PROPHYLAXIS
     Dosage: 100 MG, QD
     Route: 064
     Dates: start: 20150210, end: 20150911
  6. FOLIC ACID. [Concomitant]
     Active Substance: FOLIC ACID
     Indication: PROPHYLAXIS OF NEURAL TUBE DEFECT
     Dosage: 5 MG, QD
     Route: 064
     Dates: start: 20150209, end: 20150313
  7. CLEXANE 40 [Concomitant]
     Indication: THROMBOSIS PROPHYLAXIS
     Dosage: 40 MG, BID
     Route: 064
     Dates: start: 20150309, end: 20150911

REACTIONS (2)
  - Foetal exposure during pregnancy [Unknown]
  - Atrial septal defect [Unknown]

NARRATIVE: CASE EVENT DATE: 20150911
